FAERS Safety Report 20631125 (Version 1)
Quarter: 2022Q1

REPORT INFORMATION
  Report Type: Report from Study
  Country: CA (occurrence: CA)
  Receive Date: 20220324
  Receipt Date: 20220324
  Transmission Date: 20220423
  Serious: Yes (Life-Threatening, Disabling)
  Sender: FDA-Public Use
  Company Number: CA-JNJFOC-20200123318

PATIENT
  Age: 73 Year
  Sex: Female
  Weight: 61 kg

DRUGS (18)
  1. DARATUMUMAB [Suspect]
     Active Substance: DARATUMUMAB
     Indication: Plasma cell myeloma
     Dosage: LAST DOSE ON 13-NOV-2019
     Route: 042
     Dates: start: 20180725
  2. CYCLOPHOSPHAMIDE [Concomitant]
     Active Substance: CYCLOPHOSPHAMIDE
     Indication: Plasma cell myeloma
     Dosage: DAYS 1, 8, 15
     Route: 065
     Dates: start: 20180725, end: 20191127
  3. DEXAMETHASONE [Concomitant]
     Active Substance: DEXAMETHASONE
     Indication: Plasma cell myeloma
     Dosage: AS PER PROTOCOL
     Route: 065
  4. VITAMIN B12 [Concomitant]
     Active Substance: CYANOCOBALAMIN
     Route: 048
     Dates: start: 2012
  5. ACYCLOVIR                          /00587301/ [Concomitant]
     Indication: Antiviral prophylaxis
     Route: 048
     Dates: start: 2012
  6. RANITIDINE [Concomitant]
     Active Substance: RANITIDINE
     Indication: Gastrooesophageal reflux disease
     Route: 048
     Dates: start: 201709
  7. RANITIDINE [Concomitant]
     Active Substance: RANITIDINE
     Route: 048
     Dates: start: 20190207
  8. ASPIRIN [Concomitant]
     Active Substance: ASPIRIN
     Indication: Thrombosis prophylaxis
     Route: 048
     Dates: start: 2014
  9. VITAMIN D                          /00107901/ [Concomitant]
     Indication: General physical condition
     Route: 048
     Dates: start: 2011
  10. ZOPICLONE [Concomitant]
     Active Substance: ZOPICLONE
     Indication: Insomnia
     Route: 048
     Dates: start: 2011
  11. CETIRIZINE HYDROCHLORIDE [Concomitant]
     Active Substance: CETIRIZINE HYDROCHLORIDE
     Indication: Multiple allergies
     Route: 048
     Dates: start: 2012
  12. TYLENOL [Concomitant]
     Active Substance: ACETAMINOPHEN
     Indication: Arthritis
     Route: 048
     Dates: start: 2012
  13. MONTELUKAST [Concomitant]
     Active Substance: MONTELUKAST SODIUM
     Route: 048
     Dates: start: 20180724
  14. FLUTICASONE [Concomitant]
     Active Substance: FLUTICASONE
     Indication: Rhinitis
     Route: 055
     Dates: start: 20180725
  15. NAPROXEN [Concomitant]
     Active Substance: NAPROXEN
     Indication: Arthritis
     Route: 048
     Dates: start: 20180729
  16. GRANULOCYTE COLONY-STIMULATING FACTOR NOS [Concomitant]
     Active Substance: GRANULOCYTE COLONY-STIMULATING FACTOR NOS
     Indication: Neutropenia
     Route: 058
     Dates: start: 20180709
  17. ASPIRIN [Concomitant]
     Active Substance: ASPIRIN
     Indication: Arthralgia
     Route: 048
     Dates: start: 20180920
  18. MACROBID                           /00024401/ [Concomitant]
     Indication: Urinary tract infection
     Route: 048
     Dates: start: 20190222, end: 20190227

REACTIONS (1)
  - Progressive multifocal leukoencephalopathy [Not Recovered/Not Resolved]

NARRATIVE: CASE EVENT DATE: 20191209
